FAERS Safety Report 6644686-X (Version None)
Quarter: 2010Q1

REPORT INFORMATION
  Report Type: 
  Country: None (occurrence: None)
  Receive Date: 20100317
  Receipt Date: 20100309
  Transmission Date: 20100710
  Serious: Yes (Death)
  Sender: FDA-Public Use
  Company Number: B0639424A

PATIENT
  Sex: 0

DRUGS (6)
  1. ZIDOVUDINE [Suspect]
     Indication: PROPHYLAXIS AGAINST HIV INFECTION
     Dosage: 300 MG / TWICE PER DAY / TRANSPLACEN
     Route: 064
  2. NEVIRAPINE [Suspect]
     Indication: PROPHYLAXIS AGAINST HIV INFECTION
     Dosage: 200 MG / SINGLE DOSE / TRANSPLACENTA
  3. TENOFOVIR DISOPROXIL FUMARATE [Suspect]
     Indication: PROPHYLAXIS AGAINST HIV INFECTION
     Dosage: TRANSPLACENTARY
     Route: 064
  4. EMTRICITABINE [Suspect]
     Indication: PROPHYLAXIS AGAINST HIV INFECTION
     Dosage: TRANSPLACENTARY
     Route: 064
  5. TENOFOVIR [Concomitant]
  6. EMTRICITABINE [Concomitant]

REACTIONS (2)
  - MATERNAL DRUGS AFFECTING FOETUS [None]
  - SEPSIS NEONATAL [None]
